FAERS Safety Report 7393516-X (Version None)
Quarter: 2011Q2

REPORT INFORMATION
  Report Type: 
  Country: None (occurrence: None)
  Receive Date: 20110405
  Receipt Date: 20110329
  Transmission Date: 20111010
  Serious: Yes (Other)
  Sender: FDA-Public Use
  Company Number: US-TEVA-273685USA

PATIENT
  Age: 26 Year
  Sex: Female

DRUGS (2)
  1. TOPIRAMATE [Suspect]
     Indication: CONVULSION
  2. PROGESTERONE [Concomitant]
     Indication: HAEMORRHAGE

REACTIONS (2)
  - ANTEPARTUM HAEMORRHAGE [None]
  - ABORTION SPONTANEOUS [None]
